FAERS Safety Report 12132075 (Version 2)
Quarter: 2016Q1

REPORT INFORMATION
  Report Type: Spontaneous
  Country: TW (occurrence: TW)
  Receive Date: 20160301
  Receipt Date: 20160310
  Transmission Date: 20160526
  Serious: Yes (Other)
  Sender: FDA-Public Use
  Company Number: TW-AMGEN-TWNSP2016024698

PATIENT
  Age: 53 Year
  Sex: Female

DRUGS (12)
  1. ENBREL [Suspect]
     Active Substance: ETANERCEPT
     Dosage: 50 MG, WEEKLY
     Route: 058
     Dates: start: 20151130, end: 20160222
  2. AMBROXOL [Concomitant]
     Active Substance: AMBROXOL
     Dosage: 1 DF, 3X/DAY
  3. DULCOLAX (BISACODYL) [Concomitant]
     Active Substance: BISACODYL
     Dosage: 1 DF, QD HS
     Route: 048
  4. ARHEUMA [Concomitant]
     Dosage: 1 DF, QD
     Route: 048
  5. ARCOXIA [Concomitant]
     Active Substance: ETORICOXIB
     Dosage: 1.5 DF, QD
     Route: 048
  6. ENBREL [Suspect]
     Active Substance: ETANERCEPT
     Dosage: 25 MG, 2X/WEEK
     Route: 058
     Dates: start: 20131021
  7. NORVASC [Concomitant]
     Active Substance: AMLODIPINE BESYLATE
     Dosage: 5 MG, BID
     Route: 048
  8. TENORMIN [Concomitant]
     Active Substance: ATENOLOL
     Dosage: 1 DF, QD
     Route: 048
  9. SODICON [Concomitant]
     Dosage: 1 DF, QID
     Route: 048
  10. BENSAU [Concomitant]
     Dosage: 1 DF, BID
     Route: 048
  11. ENBREL [Suspect]
     Active Substance: ETANERCEPT
     Indication: PSORIATIC ARTHROPATHY
     Dosage: 25 MG, 2X/WEEK
     Route: 058
     Dates: start: 20111124, end: 201310
  12. TRACETON [Concomitant]
     Dosage: 1 DF, BID
     Route: 048

REACTIONS (1)
  - Hypopharyngeal cancer [Not Recovered/Not Resolved]

NARRATIVE: CASE EVENT DATE: 20160215
